FAERS Safety Report 6449366-1 (Version None)
Quarter: 2009Q4

REPORT INFORMATION
  Report Type: 
  Country: None (occurrence: None)
  Receive Date: 20091120
  Receipt Date: 20090126
  Transmission Date: 20100525
  Serious: Yes (Other)
  Sender: FDA-Public Use
  Company Number: US-AMGEN-QUU321701

PATIENT
  Sex: Female
  Weight: 104.4 kg

DRUGS (11)
  1. ENBREL [Suspect]
     Indication: RHEUMATOID ARTHRITIS
     Route: 058
     Dates: end: 20081021
  2. CELEBREX [Concomitant]
     Route: 048
  3. ALBUTEROL [Concomitant]
     Route: 055
  4. TRAMADOL HCL [Concomitant]
     Route: 048
  5. BETAMETHASONE DIPROPIONATE [Concomitant]
  6. FLEXERIL [Concomitant]
     Route: 048
  7. ADVAIR DISKUS 100/50 [Concomitant]
     Route: 055
  8. REGLAN [Concomitant]
     Route: 048
  9. MEDROL [Concomitant]
     Route: 048
  10. EFFEXOR [Concomitant]
  11. TRIAMTERENE AND HYDROCHLOROTHIAZIDE [Concomitant]

REACTIONS (7)
  - ARTHRITIS [None]
  - DEPRESSION [None]
  - DYSPNOEA [None]
  - INSOMNIA [None]
  - RASH [None]
  - RASH PRURITIC [None]
  - RHEUMATOID ARTHRITIS [None]
